FAERS Safety Report 6618850-X (Version None)
Quarter: 2010Q1

REPORT INFORMATION
  Report Type: 
  Country: None (occurrence: None)
  Receive Date: 20100302
  Receipt Date: 20100218
  Transmission Date: 20100710
  Serious: Yes (Other)
  Sender: FDA-Public Use
  Company Number: 2010S1000104-001

PATIENT
  Age: 52 Year
  Sex: Female

DRUGS (2)
  1. PITAVASTATIN CALCIUM [Suspect]
     Indication: HYPERCHOLESTEROLAEMIA
     Dosage: 2MG PO
     Route: 048
     Dates: start: 20091201, end: 20100126
  2. AZELNIDIPINE [Concomitant]

REACTIONS (6)
  - ASPARTATE AMINOTRANSFERASE INCREASED [None]
  - BLOOD CREATINE PHOSPHOKINASE INCREASED [None]
  - BLOOD LACTATE DEHYDROGENASE INCREASED [None]
  - DIARRHOEA [None]
  - MYALGIA [None]
  - RHABDOMYOLYSIS [None]
